FAERS Safety Report 18546758 (Version 2)
Quarter: 2020Q4

REPORT INFORMATION
  Report Type: Spontaneous
  Country: US (occurrence: US)
  Receive Date: 20201125
  Receipt Date: 20201211
  Transmission Date: 20210114
  Serious: No
  Sender: FDA-Public Use
  Company Number: US-CELGENEUS-USA-20201004052

PATIENT
  Age: 32 Year
  Sex: Female
  Weight: 113.05 kg

DRUGS (2)
  1. FLUCONAZOLE. [Suspect]
     Active Substance: FLUCONAZOLE
     Indication: FUNGAL INFECTION
     Dosage: 100 MILLIGRAM
     Route: 065
  2. ZEPOSIA [Suspect]
     Active Substance: OZANIMOD HYDROCHLORIDE
     Indication: MULTIPLE SCLEROSIS
     Dosage: .92 MILLIGRAM
     Route: 048
     Dates: start: 20200816

REACTIONS (5)
  - Memory impairment [Unknown]
  - Balance disorder [Unknown]
  - Muscle strength abnormal [Unknown]
  - Fungal infection [Unknown]
  - Dizziness [Unknown]

NARRATIVE: CASE EVENT DATE: 20200816
